FAERS Safety Report 5962765 (Version 3)
Quarter: 2018Q2

REPORT INFORMATION
  Report Type: Spontaneous
  Country: ES (occurrence: ES)
  Receive Date: 20060118
  Receipt Date: 20180620
  Transmission Date: 20180711
  Serious: Yes (Other)
  Sender: FDA-Public Use
  Company Number: PHBS2006ES00756

PATIENT
  Age: 55 Year
  Sex: Male

DRUGS (3)
  1. IMATINIB [Suspect]
     Active Substance: IMATINIB
     Indication: CHRONIC MYELOID LEUKAEMIA
     Dosage: 400 MG/DAY
     Route: 065
     Dates: start: 200210
  2. INTERFERON ALFA NOS [Concomitant]
     Active Substance: INTERFERON ALFA-2A OR INTERFERON ALFA-2B
     Indication: PRODUCT USED FOR UNKNOWN INDICATION
     Dosage: 3MILLION UNITS THREE TIMES PER WEEK
     Route: 065
     Dates: start: 200401
  3. IMATINIB [Suspect]
     Active Substance: IMATINIB
     Indication: SYSTEMIC SCLERODERMA
     Dosage: 300 MG/DAY
     Route: 065

REACTIONS (5)
  - Anaemia [Recovered/Resolved]
  - Neutropenia [Recovered/Resolved]
  - Chromosome analysis abnormal [Recovered/Resolved]
  - Erythropoiesis abnormal [Unknown]
  - Myelodysplastic syndrome [Recovered/Resolved]
